FAERS Safety Report 8439111-2 (Version None)
Quarter: 2012Q2

REPORT INFORMATION
  Report Type: 
  Country: None (occurrence: None)
  Receive Date: 20120615
  Receipt Date: 20120531
  Transmission Date: 20120825
  Serious: Yes (Life-Threatening, Hospitalization, Other)
  Sender: FDA-Public Use
  Company Number: US-MYLANLABS-2009AC000161

PATIENT
  Age: 2 Month
  Sex: Female
  Weight: 29.7 kg

DRUGS (38)
  1. ALBUTEROL [Concomitant]
     Dosage: NEBULIZER MACHINE WITH PRE-MIXED SOLUTION PACKETS
  2. LORTAB [Concomitant]
     Dosage: 1 TO 2 PILLS AS NEEDED
  3. LASIX [Concomitant]
  4. ENALAPRIL MALEATE [Concomitant]
  5. ACETAMINOPHEN AND HYDROCODONE BITARTRATE [Concomitant]
  6. DOBUTAMINE HCL [Concomitant]
  7. LIDOCAINE [Concomitant]
  8. FENTANYL [Concomitant]
  9. COMBINATIONS OF ANTIBACTERIALS [Concomitant]
     Dosage: PROPHYLAXIS FOR BACTERIAL ENDOCARDITIS
  10. CARDIAC THERAPY [Concomitant]
  11. CARVEDILOL [Concomitant]
  12. COLACE [Concomitant]
  13. RIBOFLAVIN [Concomitant]
  14. EPINEPHRINE [Concomitant]
     Route: 042
  15. MEROPENEM [Concomitant]
  16. DECADRON [Concomitant]
  17. AMOXICILLIN [Concomitant]
  18. VICODIN [Concomitant]
  19. FUROSEMIDE [Concomitant]
  20. ORAPRED [Concomitant]
     Dosage: FOR 3 DAYS
  21. MILRINONE LACTATE [Concomitant]
  22. VERSED [Concomitant]
  23. MORPHINE [Concomitant]
  24. DIGOXIN [Suspect]
     Indication: PRODUCT USED FOR UNKNOWN INDICATION
     Dosage: DOSE UNIT:
     Route: 048
     Dates: start: 19970930, end: 20090427
  25. FERROUS SULFATE TAB [Concomitant]
  26. MAGNESIUM [Concomitant]
  27. AMPICILLIN [Concomitant]
  28. ALDACTONE [Concomitant]
  29. ASPIRIN [Concomitant]
  30. NIPRIDE [Concomitant]
  31. DOPAMINE HCL [Concomitant]
  32. LABETALOL HYDROCHLORIDE [Concomitant]
  33. CAPTOPRIL [Concomitant]
  34. NIMBEX [Concomitant]
  35. AMIODARONE HCL [Concomitant]
  36. CAPTOPRIL [Concomitant]
  37. ROCEPHIN [Concomitant]
  38. VANCOMYCIN [Concomitant]

REACTIONS (85)
  - SINUS TACHYCARDIA [None]
  - MENTAL IMPAIRMENT [None]
  - CROUP INFECTIOUS [None]
  - PYREXIA [None]
  - CRYING [None]
  - IMPLANTABLE DEFIBRILLATOR INSERTION [None]
  - RASH [None]
  - CYANOSIS [None]
  - ECONOMIC PROBLEM [None]
  - CIRCULATORY COLLAPSE [None]
  - VENTRICULAR FIBRILLATION [None]
  - TACHYARRHYTHMIA [None]
  - CARDIOMEGALY [None]
  - PATENT DUCTUS ARTERIOSUS REPAIR [None]
  - TREATMENT NONCOMPLIANCE [None]
  - ARRHYTHMIA [None]
  - RESPIRATORY TRACT CONGESTION [None]
  - RESUSCITATION [None]
  - X-RAY ABNORMAL [None]
  - VENTRICULAR HYPOKINESIA [None]
  - SINUS BRADYCARDIA [None]
  - PUPILLARY REFLEX IMPAIRED [None]
  - ATELECTASIS [None]
  - CARDIAC ARREST [None]
  - VENTRICULAR TACHYCARDIA [None]
  - UNRESPONSIVE TO STIMULI [None]
  - HYPOGLYCAEMIA [None]
  - TRICUSPID VALVE INCOMPETENCE [None]
  - CARDIAC FAILURE CONGESTIVE [None]
  - VENTRICULAR DYSFUNCTION [None]
  - LOSS OF CONSCIOUSNESS [None]
  - CARDIAC DISORDER [None]
  - SUPRAVENTRICULAR TACHYCARDIA [None]
  - CATHETERISATION CARDIAC [None]
  - HAEMODYNAMIC INSTABILITY [None]
  - ANURIA [None]
  - DYSMORPHISM [None]
  - TACHYCARDIA [None]
  - EYELID PTOSIS [None]
  - INJURY [None]
  - PULMONARY OEDEMA [None]
  - DYSPNOEA [None]
  - MENTAL STATUS CHANGES [None]
  - RESPIRATORY FAILURE [None]
  - HYPERTROPHY [None]
  - RESPIRATION ABNORMAL [None]
  - METABOLIC DISORDER [None]
  - BRONCHIOLITIS [None]
  - DILATATION VENTRICULAR [None]
  - APNOEA [None]
  - MECHANICAL VENTILATION [None]
  - ACIDOSIS [None]
  - NODAL RHYTHM [None]
  - SUPRAVENTRICULAR EXTRASYSTOLES [None]
  - WHEEZING [None]
  - PLEURAL EFFUSION [None]
  - PULMONARY CONGESTION [None]
  - FATIGUE [None]
  - AORTIC VALVE INCOMPETENCE [None]
  - ENDOTRACHEAL INTUBATION [None]
  - MIDDLE INSOMNIA [None]
  - BRONCHITIS [None]
  - CARDIO-RESPIRATORY ARREST [None]
  - CARDIAC MURMUR [None]
  - MYOCARDIAL INFARCTION [None]
  - ILL-DEFINED DISORDER [None]
  - CARDIOMYOPATHY [None]
  - COUGH [None]
  - ACTIVITIES OF DAILY LIVING IMPAIRED [None]
  - VOMITING [None]
  - CARDIOVERSION [None]
  - CARDIAC VALVE DISEASE [None]
  - ECHOCARDIOGRAM ABNORMAL [None]
  - VENTRICULAR EXTRASYSTOLES [None]
  - THROMBOSIS [None]
  - LUNG INFILTRATION [None]
  - OXYGEN SATURATION DECREASED [None]
  - ILIAC VEIN OCCLUSION [None]
  - PERICARDIAL EFFUSION [None]
  - METABOLIC ACIDOSIS [None]
  - CARDIOGENIC SHOCK [None]
  - VENTRICULAR ARRHYTHMIA [None]
  - ANGIOGRAM [None]
  - ELECTROCARDIOGRAM ABNORMAL [None]
  - ABDOMINAL DISTENSION [None]
